FAERS Safety Report 17509770 (Version 1)
Quarter: 2020Q1

REPORT INFORMATION
  Report Type: Spontaneous
  Country: JP (occurrence: JP)
  Receive Date: 20200306
  Receipt Date: 20200306
  Transmission Date: 20200409
  Serious: Yes (Other)
  Sender: FDA-Public Use
  Company Number: JP-ACTELION-A-CH2020-202691

PATIENT
  Age: 1 Year
  Sex: Female

DRUGS (6)
  1. TRACLEER [Suspect]
     Active Substance: BOSENTAN
     Indication: PULMONARY ARTERIAL HYPERTENSION
     Dosage: 4 MG, TID
     Route: 048
     Dates: start: 20170503, end: 20170510
  2. NITRIC OXIDE. [Concomitant]
     Active Substance: NITRIC OXIDE
     Dosage: UNK
     Route: 055
     Dates: end: 20170501
  3. TRACLEER [Suspect]
     Active Substance: BOSENTAN
     Dosage: 4 MG, BID
     Route: 048
     Dates: start: 20160804, end: 20170417
  4. REVATIO [Concomitant]
     Active Substance: SILDENAFIL CITRATE
     Indication: PULMONARY HYPERTENSION
     Dosage: 6 MG, TID
     Route: 048
     Dates: start: 20160801, end: 20170417
  5. REVATIO [Concomitant]
     Active Substance: SILDENAFIL CITRATE
     Dosage: 6 MG, TID
     Route: 048
     Dates: start: 20170503, end: 20170510
  6. FLOLAN [Concomitant]
     Active Substance: EPOPROSTENOL SODIUM
     Indication: PULMONARY HYPERTENSION
     Dosage: 18.9 NG/KG, PER MIN
     Route: 041
     Dates: start: 20170415, end: 20170509

REACTIONS (1)
  - Pulmonary alveolar haemorrhage [Recovered/Resolved]

NARRATIVE: CASE EVENT DATE: 20170510
